FAERS Safety Report 9700705 (Version 1)
Quarter: 2013Q4

REPORT INFORMATION
  Report Type: Report from Study
  Country: CA (occurrence: CA)
  Receive Date: 20131121
  Receipt Date: 20131121
  Transmission Date: 20140711
  Serious: Yes (Other)
  Sender: FDA-Public Use
  Company Number: CA-JNJFOC-20131107842

PATIENT
  Sex: Male

DRUGS (4)
  1. STELARA [Suspect]
     Indication: PSORIASIS
     Dosage: MOTHER^S DOSING
     Route: 064
  2. STELARA [Suspect]
     Indication: PSORIASIS
     Route: 064
     Dates: start: 20130831
  3. LOVENOX [Suspect]
     Indication: THROMBOSIS
     Route: 065
     Dates: start: 201212, end: 201306
  4. LOVENOX [Suspect]
     Indication: THROMBOSIS
     Dosage: MOTHER^S DOSING
     Route: 065

REACTIONS (4)
  - Asthma [Unknown]
  - Psoriasis [Unknown]
  - Foetal exposure during pregnancy [Recovered/Resolved]
  - Premature baby [Not Recovered/Not Resolved]
